FAERS Safety Report 8379171-0 (Version None)
Quarter: 2012Q1

REPORT INFORMATION
  Report Type: 
  Country: None (occurrence: None)
  Receive Date: 20120323
  Receipt Date: 20110316
  Transmission Date: 20120608
  Serious: Yes (Hospitalization)
  Sender: FDA-Public Use
  Company Number: 163-21880-11032196

PATIENT
  Age: 81 Year
  Sex: Female
  Weight: 70.3 kg

DRUGS (2)
  1. REVLIMID [Suspect]
  2. REVLIMID [Suspect]
     Indication: MULTIPLE MYELOMA
     Dosage: 10 MG, DAILY X 2 WEEKS/OFF 1 WEEK, PO, 10 MG, DAILY X 2 WEEKS/OFF 1 WEEK, PO
     Route: 048
     Dates: start: 20070829, end: 20080527

REACTIONS (3)
  - RHINORRHOEA [None]
  - ASTHENIA [None]
  - CELLULITIS [None]
